FAERS Safety Report 14985242 (Version 1)
Quarter: 2018Q2

REPORT INFORMATION
  Report Type: Spontaneous
  Country: US (occurrence: US)
  Receive Date: 20180607
  Receipt Date: 20180607
  Transmission Date: 20180711
  Serious: No
  Sender: FDA-Public Use
  Company Number: US-SHIRE-US201821017

PATIENT
  Age: 71 Year
  Sex: Male
  Weight: 136.5 kg

DRUGS (2)
  1. GAMMAGARD LIQUID [Suspect]
     Active Substance: HUMAN IMMUNOGLOBULIN G
     Dosage: 130 G, EVERY 4 WK
     Route: 065
     Dates: start: 201708
  2. GAMMAGARD LIQUID [Suspect]
     Active Substance: HUMAN IMMUNOGLOBULIN G
     Indication: PRODUCT USED FOR UNKNOWN INDICATION
     Dosage: 130 G, EVERY 4 WK
     Route: 065
     Dates: start: 201708

REACTIONS (1)
  - Blood electrolytes increased [Unknown]
